FAERS Safety Report 15952807 (Version 9)
Quarter: 2019Q3

REPORT INFORMATION
  Report Type: Report from Study
  Country: US (occurrence: US)
  Receive Date: 20190212
  Receipt Date: 20190913
  Transmission Date: 20191004
  Serious: Yes (Hospitalization, Other)
  Sender: FDA-Public Use
  Company Number: US-ASTRAZENECA-2018SE88855

PATIENT
  Age: 57 Year
  Sex: Female
  Weight: 66.7 kg

DRUGS (18)
  1. PROCHLORPERAZINE MALEATE. [Concomitant]
     Active Substance: PROCHLORPERAZINE MALEATE
     Route: 048
     Dates: start: 20180827
  2. IMFINZI [Suspect]
     Active Substance: DURVALUMAB
     Indication: LUNG NEOPLASM MALIGNANT
     Dosage: 10 MG/KG
     Route: 042
     Dates: start: 20180724
  3. ATIVAN [Concomitant]
     Active Substance: LORAZEPAM
     Route: 048
     Dates: start: 20180912
  4. LORATADINE. [Concomitant]
     Active Substance: LORATADINE
     Route: 048
     Dates: start: 20180827
  5. OXYCODONE [Concomitant]
     Active Substance: OXYCODONE
     Route: 048
     Dates: start: 20180827
  6. IMFINZI [Suspect]
     Active Substance: DURVALUMAB
     Indication: LUNG NEOPLASM MALIGNANT
     Dosage: 10 MG/KG
     Route: 042
     Dates: start: 20180807
  7. IMFINZI [Suspect]
     Active Substance: DURVALUMAB
     Indication: LUNG NEOPLASM MALIGNANT
     Dosage: 670.0MG UNKNOWN
     Route: 042
     Dates: start: 20180914
  8. EFFEXOR XR [Concomitant]
     Active Substance: VENLAFAXINE HYDROCHLORIDE
     Route: 048
     Dates: start: 20180827
  9. MACROBID [Concomitant]
     Active Substance: NITROFURANTOIN\NITROFURANTOIN MONOHYDRATE
     Route: 048
     Dates: start: 20180830
  10. ZOFRAN [Concomitant]
     Active Substance: ONDANSETRON HYDROCHLORIDE
     Route: 048
     Dates: start: 20180921
  11. IMFINZI [Suspect]
     Active Substance: DURVALUMAB
     Indication: LUNG NEOPLASM MALIGNANT
     Dosage: 10 MG/KG
     Route: 042
     Dates: start: 20180625
  12. IMFINZI [Suspect]
     Active Substance: DURVALUMAB
     Indication: LUNG NEOPLASM MALIGNANT
     Dosage: 670.0MG UNKNOWN
     Route: 042
     Dates: start: 20180917, end: 20181029
  13. CRESTOR [Suspect]
     Active Substance: ROSUVASTATIN CALCIUM
     Route: 048
     Dates: start: 20180827
  14. DEXAMETHASONE. [Concomitant]
     Active Substance: DEXAMETHASONE
     Route: 048
     Dates: start: 20181015
  15. OXYCODONE [Concomitant]
     Active Substance: OXYCODONE
     Dosage: OXYCODONE ER TABLET ,1 DF TWO TIMES A DAY
     Route: 048
     Dates: start: 20180827
  16. IMFINZI [Suspect]
     Active Substance: DURVALUMAB
     Indication: LUNG NEOPLASM MALIGNANT
     Dosage: 10 MG/KG
     Route: 042
     Dates: start: 20180710
  17. BACLOFEN. [Concomitant]
     Active Substance: BACLOFEN
     Route: 048
     Dates: start: 20180827
  18. BACTRIM DS [Concomitant]
     Active Substance: SULFAMETHOXAZOLE\TRIMETHOPRIM
     Dosage: 800 MG/60 MG 1 DF TWO TIMES A DAY
     Route: 048
     Dates: start: 20180912

REACTIONS (31)
  - Metastases to lymph nodes [Unknown]
  - Fatigue [Not Recovered/Not Resolved]
  - Hepatic steatosis [Unknown]
  - Blood creatinine increased [Unknown]
  - Radiation oesophagitis [Unknown]
  - Malignant neoplasm progression [Recovering/Resolving]
  - Anaemia [Unknown]
  - Complex regional pain syndrome [Unknown]
  - Hyperlipidaemia [Unknown]
  - Blood iron decreased [Recovered/Resolved]
  - Feeding disorder [Unknown]
  - Abdominal pain upper [Unknown]
  - Night sweats [Unknown]
  - Diverticulum intestinal [Unknown]
  - Renal failure [Unknown]
  - Pneumonia [Recovered/Resolved]
  - Lung neoplasm malignant [Unknown]
  - Breast cancer female [Unknown]
  - Nausea [Unknown]
  - Pulmonary mass [Unknown]
  - Migraine [Unknown]
  - Osteoarthritis [Unknown]
  - Goitre [Unknown]
  - Pancreatitis chronic [Unknown]
  - Pancreatitis acute [Unknown]
  - Dyspepsia [Not Recovered/Not Resolved]
  - Ear discomfort [Not Recovered/Not Resolved]
  - Renal disorder [Unknown]
  - Feeling abnormal [Unknown]
  - Gastrooesophageal reflux disease [Unknown]
  - Gastritis [Unknown]

NARRATIVE: CASE EVENT DATE: 20180626
